FAERS Safety Report 23605358 (Version 3)
Quarter: 2024Q1

REPORT INFORMATION
  Report Type: Other
  Country: CA (occurrence: None)
  Receive Date: 20240307
  Receipt Date: 20240314
  Transmission Date: 20240410
  Serious: Yes (Other)
  Sender: FDA-Public Use
  Company Number: CA-ROCHE-3471347

PATIENT
  Age: 56 Year
  Sex: Male

DRUGS (1)
  1. OCREVUS [Suspect]
     Active Substance: OCRELIZUMAB
     Indication: Relapsing-remitting multiple sclerosis
     Dosage: 300 MG AT DAY 0 AND 14, THEN 600 MG EVERY 6 MONTH
     Route: 042
     Dates: start: 20200806

REACTIONS (4)
  - Arthropathy [Unknown]
  - Influenza [Recovering/Resolving]
  - Nasopharyngitis [Not Recovered/Not Resolved]
  - Respiratory tract inflammation [Not Recovered/Not Resolved]

NARRATIVE: CASE EVENT DATE: 20240218
